FAERS Safety Report 20150786 (Version 4)
Quarter: 2022Q1

REPORT INFORMATION
  Report Type: Spontaneous
  Country: MX (occurrence: MX)
  Receive Date: 20211206
  Receipt Date: 20220202
  Transmission Date: 20220424
  Serious: Yes (Other)
  Sender: FDA-Public Use
  Company Number: MX-NOVARTISPH-NVSC2021MX264036

PATIENT
  Sex: Female

DRUGS (2)
  1. VOTRIENT [Suspect]
     Active Substance: PAZOPANIB HYDROCHLORIDE
     Indication: Soft tissue sarcoma
     Dosage: 800 MG
     Route: 065
     Dates: start: 20210601
  2. VOTRIENT [Suspect]
     Active Substance: PAZOPANIB HYDROCHLORIDE
     Indication: Renal cancer
     Dosage: 600 MG QD (DAILY  STARTED 3 MONTHS AGO)
     Route: 065
     Dates: start: 20210615

REACTIONS (13)
  - Bradycardia [Recovering/Resolving]
  - Oesophagitis [Recovering/Resolving]
  - Taste disorder [Recovering/Resolving]
  - Madarosis [Recovering/Resolving]
  - Hair growth rate abnormal [Recovering/Resolving]
  - Vertigo [Recovering/Resolving]
  - Hot flush [Not Recovered/Not Resolved]
  - Amenorrhoea [Not Recovered/Not Resolved]
  - Hair colour changes [Recovering/Resolving]
  - Fatigue [Unknown]
  - Somnolence [Unknown]
  - Decreased appetite [Unknown]
  - Weight decreased [Unknown]

NARRATIVE: CASE EVENT DATE: 20210610
